FAERS Safety Report 4948890-8 (Version None)
Quarter: 2006Q1

REPORT INFORMATION
  Report Type: 
  Country: None (occurrence: None)
  Receive Date: 20060321
  Receipt Date: 20060310
  Transmission Date: 20060701
  Serious: Yes (Hospitalization)
  Sender: FDA-Public Use
  Company Number: SE-JNJFOC-20060302770

PATIENT
  Age: 55 Year
  Sex: Female

DRUGS (2)
  1. REMICADE [Suspect]
     Indication: CROHN'S DISEASE
     Dosage: LAST INFUSION ON 1-SEP-2005
     Route: 042
  2. ENTOCORT [Concomitant]

REACTIONS (4)
  - ARTHRITIS [None]
  - LISTERIOSIS [None]
  - PYREXIA [None]
  - SEPSIS [None]
